FAERS Safety Report 6976107-1 (Version None)
Quarter: 2010Q3

REPORT INFORMATION
  Report Type: 
  Country: None (occurrence: None)
  Receive Date: 20100910
  Receipt Date: 20100830
  Transmission Date: 20110219
  Serious: Yes (Hospitalization)
  Sender: FDA-Public Use
  Company Number: DE-PFIZER INC-2010101400

PATIENT
  Sex: Male

DRUGS (2)
  1. LYRICA [Suspect]
     Indication: NEURALGIA
     Dosage: 100 MG, UNK
     Route: 048
  2. LYRICA [Suspect]
     Dosage: 75 MG, UNK
     Route: 048

REACTIONS (3)
  - DRUG EFFECT DECREASED [None]
  - INCONTINENCE [None]
  - URETHRAL PAIN [None]
